FAERS Safety Report 7605339-4 (Version None)
Quarter: 2011Q3

REPORT INFORMATION
  Report Type: 
  Country: None (occurrence: None)
  Receive Date: 20110713
  Receipt Date: 20110707
  Transmission Date: 20111222
  Serious: Yes (Life-Threatening, Hospitalization, Other)
  Sender: FDA-Public Use
  Company Number: FR-ELI_LILLY_AND_COMPANY-FR201107001798

PATIENT
  Sex: Female

DRUGS (5)
  1. CYMBALTA [Suspect]
     Dosage: UNK, UNKNOWN
  2. METEOSPASMYL                       /01017401/ [Concomitant]
  3. CYMBALTA [Suspect]
     Dosage: 30 MG, QD
     Route: 048
     Dates: end: 20110320
  4. ZOLPIDEM [Concomitant]
  5. TERCIAN [Concomitant]

REACTIONS (4)
  - SUICIDE ATTEMPT [None]
  - INTENTIONAL SELF-INJURY [None]
  - SUICIDAL IDEATION [None]
  - DEPRESSION [None]
